FAERS Safety Report 11725944 (Version 2)
Quarter: 2015Q4

REPORT INFORMATION
  Report Type: Report from Study
  Country: US (occurrence: US)
  Receive Date: 20151112
  Receipt Date: 20151208
  Transmission Date: 20160304
  Serious: No
  Sender: FDA-Public Use
  Company Number: US-AMGEN-USASL2015110597

PATIENT
  Age: 9 Year
  Sex: Female

DRUGS (1)
  1. ENBREL [Suspect]
     Active Substance: ETANERCEPT
     Indication: JUVENILE IDIOPATHIC ARTHRITIS
     Dosage: 25 MG, QWK
     Route: 065
     Dates: start: 20150929

REACTIONS (9)
  - Rash macular [Unknown]
  - Skin discolouration [Unknown]
  - Tooth infection [Unknown]
  - Device issue [Unknown]
  - Rash erythematous [Recovering/Resolving]
  - Tooth disorder [Unknown]
  - Rash generalised [Recovering/Resolving]
  - Tooth erosion [Unknown]
  - Pain in extremity [Unknown]

NARRATIVE: CASE EVENT DATE: 201510
